FAERS Safety Report 9683885 (Version 2)
Quarter: 2013Q4

REPORT INFORMATION
  Report Type: Spontaneous
  Country: US (occurrence: US)
  Receive Date: 20131112
  Receipt Date: 20131112
  Transmission Date: 20140711
  Serious: No
  Sender: FDA-Public Use
  Company Number: US-MALLINCKRODT-T201304229

PATIENT
  Age: 71 Year
  Sex: Male
  Weight: 79.37 kg

DRUGS (6)
  1. FENTANYL TRANSDERMAL SYSTEM [Suspect]
     Indication: BACK PAIN
     Dosage: 50 UG/HR, EVERY 72 HOURS
     Route: 062
     Dates: start: 201308, end: 20130824
  2. FENTANYL TRANSDERMAL SYSTEM [Suspect]
     Indication: PAIN IN EXTREMITY
  3. SUMATRIPTAN [Concomitant]
     Indication: HEADACHE
     Dosage: UNK, PRN
     Route: 048
  4. GABAPENTIN [Concomitant]
     Indication: NEUROPATHY PERIPHERAL
     Dosage: 900 MG, UNK
     Route: 048
  5. NAPROXEN [Concomitant]
     Indication: ARTHRITIS
     Dosage: 500 MG, BID
     Route: 048
  6. HUMIRA [Concomitant]
     Indication: ARTHRITIS
     Dosage: INJECTION ONCE WEEKLY
     Route: 058

REACTIONS (5)
  - Cluster headache [Recovered/Resolved]
  - Decreased appetite [Recovered/Resolved]
  - Asthenia [Recovered/Resolved]
  - Feeling of body temperature change [Recovered/Resolved]
  - Abnormal loss of weight [Recovering/Resolving]
